FAERS Safety Report 8590819 (Version 6)
Quarter: 2012Q4

REPORT INFORMATION
  Report Type: 
  Country: JP (occurrence: JP)
  Receive Date: 20120601
  Receipt Date: 20121120
  Transmission Date: 20130627
  Serious: Yes (Disabling, Other)
  Sender: FDA-Public Use
  Company Number: JP-ROCHE-1072950

PATIENT
  Age: 82 Year
  Sex: Male
  Weight: 58 kg

DRUGS (17)
  1. AVASTIN [Suspect]
     Indication: AGE-RELATED MACULAR DEGENERATION
     Route: 031
     Dates: start: 20091001, end: 20091001
  2. AVASTIN [Suspect]
     Route: 031
     Dates: start: 20100114, end: 20100114
  3. AVASTIN [Suspect]
     Route: 031
     Dates: start: 20100218
  4. LUCENTIS [Suspect]
     Indication: AGE-RELATED MACULAR DEGENERATION
     Route: 050
     Dates: start: 20090428, end: 20090428
  5. LUCENTIS [Suspect]
     Route: 050
     Dates: start: 20090528, end: 20090528
  6. LUCENTIS [Suspect]
     Route: 050
     Dates: start: 20090625, end: 20090625
  7. LUCENTIS [Suspect]
     Route: 050
     Dates: start: 20091211, end: 20091211
  8. VISUDYNE [Suspect]
     Indication: AGE-RELATED MACULAR DEGENERATION
     Route: 041
     Dates: start: 20091016
  9. VISUDYNE [Suspect]
     Route: 042
     Dates: start: 20100122, end: 20100122
  10. CRAVIT [Concomitant]
     Route: 065
     Dates: start: 20090428, end: 20090626
  11. DIAMOX [Concomitant]
     Route: 065
     Dates: start: 20090428, end: 20090625
  12. CATALIN [Concomitant]
  13. THEOLONG [Concomitant]
  14. HUSCODE [Concomitant]
  15. MUCODYNE [Concomitant]
  16. MUCOSOLVAN [Concomitant]
  17. TAKEPRON [Concomitant]

REACTIONS (3)
  - Retinal pigment epithelial tear [Recovered/Resolved with Sequelae]
  - Choroidal neovascularisation [Unknown]
  - Retinal haemorrhage [Unknown]
